FAERS Safety Report 7126489-5 (Version None)
Quarter: 2010Q4

REPORT INFORMATION
  Report Type: 
  Country: None (occurrence: None)
  Receive Date: 20101129
  Receipt Date: 20101117
  Transmission Date: 20110411
  Serious: Yes (Other)
  Sender: FDA-Public Use
  Company Number: BR-ASTRAZENECA-2010SE55238

PATIENT
  Age: 29 Year
  Sex: Female
  Weight: 67 kg

DRUGS (6)
  1. METOPROLOL SUCCINATE [Suspect]
     Indication: CARDIOMYOPATHY
     Route: 048
     Dates: start: 20070101
  2. SEROQUEL [Suspect]
     Indication: BIPOLAR DISORDER
     Route: 048
     Dates: start: 20101108, end: 20101109
  3. SEROQUEL [Suspect]
     Route: 048
     Dates: start: 20101110, end: 20101111
  4. SEROQUEL [Suspect]
     Route: 048
     Dates: start: 20101112
  5. LITHIUM CARBONATE [Concomitant]
     Indication: BIPOLAR DISORDER
     Route: 048
     Dates: start: 20090101
  6. PAROXETINE [Concomitant]
     Indication: BIPOLAR DISORDER
     Route: 048
     Dates: start: 20000101, end: 20101107

REACTIONS (10)
  - ANXIETY [None]
  - BLOOD PRESSURE FLUCTUATION [None]
  - DYSPNOEA [None]
  - EUPHORIC MOOD [None]
  - FATIGUE [None]
  - HYPOTENSION [None]
  - INSOMNIA [None]
  - SEDATION [None]
  - SOMNOLENCE [None]
  - TACHYCARDIA [None]
